FAERS Safety Report 20097062 (Version 1)
Quarter: 2021Q4

REPORT INFORMATION
  Report Type: Report from Study
  Country: US (occurrence: US)
  Receive Date: 20211122
  Receipt Date: 20211122
  Transmission Date: 20220304
  Serious: Yes (Hospitalization)
  Sender: FDA-Public Use
  Company Number: US-CELGENE-USA-20211103835

PATIENT
  Age: 56 Year
  Sex: Female

DRUGS (16)
  1. ABRAXANE [Suspect]
     Active Substance: PACLITAXEL
     Indication: Pancreatic carcinoma
     Dosage: 17.8571 MILLIGRAM/SQ. METER
     Route: 041
     Dates: start: 20210514, end: 20210521
  2. ABRAXANE [Suspect]
     Active Substance: PACLITAXEL
     Dosage: 17.8571 MILLIGRAM/SQ. METER
     Route: 041
     Dates: start: 20210610
  3. NGM-120 [Suspect]
     Active Substance: NGM-120
     Indication: Pancreatic carcinoma
     Route: 065
     Dates: start: 20170514
  4. NGM-120 [Suspect]
     Active Substance: NGM-120
     Route: 065
     Dates: start: 20210521
  5. GEMCITABINE [Suspect]
     Active Substance: GEMCITABINE
     Indication: Pancreatic carcinoma
     Dosage: 142.8571 MILLIGRAM/SQ. METER
     Route: 041
     Dates: start: 20210514, end: 20210521
  6. GEMCITABINE [Suspect]
     Active Substance: GEMCITABINE
     Dosage: 114.2857 MILLIGRAM/SQ. METER
     Route: 041
     Dates: start: 20210528
  7. INSULIN LISPRO [Concomitant]
     Active Substance: INSULIN LISPRO
     Indication: Product used for unknown indication
     Route: 065
     Dates: start: 2015
  8. LOSARTAN [Concomitant]
     Active Substance: LOSARTAN
     Indication: Product used for unknown indication
     Route: 065
     Dates: start: 2015
  9. INSULIN GLARGINE [Concomitant]
     Active Substance: INSULIN GLARGINE
     Indication: Product used for unknown indication
     Route: 065
     Dates: start: 2018
  10. ESOMEPRAZOLE [Concomitant]
     Active Substance: ESOMEPRAZOLE
     Indication: Product used for unknown indication
     Route: 065
     Dates: start: 20180430
  11. PRAVASTATIN [Concomitant]
     Active Substance: PRAVASTATIN
     Indication: Product used for unknown indication
     Route: 065
     Dates: start: 202008
  12. PREGABALIN [Concomitant]
     Active Substance: PREGABALIN
     Indication: Product used for unknown indication
     Route: 065
     Dates: start: 202008
  13. POLYETHYLENE GLYCOL 3350 [Concomitant]
     Active Substance: POLYETHYLENE GLYCOL 3350
     Indication: Product used for unknown indication
     Route: 065
     Dates: start: 20210504
  14. DOCUSATE SODIUM [Concomitant]
     Active Substance: DOCUSATE SODIUM
     Indication: Product used for unknown indication
     Route: 065
     Dates: start: 20210504
  15. ONDANSETRON [Concomitant]
     Active Substance: ONDANSETRON
     Indication: Product used for unknown indication
     Route: 065
     Dates: start: 20210511
  16. PROCHLORPERAZINE [Concomitant]
     Active Substance: PROCHLORPERAZINE
     Indication: Product used for unknown indication
     Route: 065
     Dates: start: 20210511

REACTIONS (1)
  - Colitis [Recovered/Resolved]

NARRATIVE: CASE EVENT DATE: 20210525
